FAERS Safety Report 6396072-8 (Version None)
Quarter: 2009Q4

REPORT INFORMATION
  Report Type: 
  Country: None (occurrence: None)
  Receive Date: 20091009
  Receipt Date: 20090928
  Transmission Date: 20100525
  Serious: Yes (Other)
  Sender: FDA-Public Use
  Company Number: US-WATSON-2009-08065

PATIENT
  Age: 26 Year
  Sex: Male

DRUGS (1)
  1. HALOPERIDOL (WATSON LABORATORIES) [Suspect]
     Indication: AGITATION
     Dosage: A SINGLE DOSE

REACTIONS (2)
  - CARDIAC ARREST [None]
  - TORSADE DE POINTES [None]
